FAERS Safety Report 15849184 (Version 2)
Quarter: 2019Q1

REPORT INFORMATION
  Report Type: Report from Study
  Country: IT (occurrence: IT)
  Receive Date: 20190121
  Receipt Date: 20190207
  Transmission Date: 20190417
  Serious: Yes (Hospitalization)
  Sender: FDA-Public Use
  Company Number: IT-TEVA-2019-IT-1001768

PATIENT
  Age: 90 Year
  Sex: Female

DRUGS (6)
  1. DEPAKIN 500 MG COMPRESSE GASTRORESISTENTI [Suspect]
     Active Substance: VALPROATE SODIUM
     Indication: PRODUCT ADMINISTRATION ERROR
     Dosage: UNK, TOTAL
     Route: 048
     Dates: start: 20181127, end: 20181127
  2. CHLORPROMAZINE HYDROCHLORIDE. [Suspect]
     Active Substance: CHLORPROMAZINE HYDROCHLORIDE
     Indication: PRODUCT ADMINISTRATION ERROR
     Dosage: 1 DF, TOTAL
     Route: 048
     Dates: start: 20181127, end: 20181127
  3. CARBIDOPA/LEVODOPA [Suspect]
     Active Substance: CARBIDOPA\LEVODOPA
     Indication: PRODUCT ADMINISTRATION ERROR
     Dosage: 1 DF, TOTAL
     Route: 048
     Dates: start: 20181127, end: 20181127
  4. VALIUM [Suspect]
     Active Substance: DIAZEPAM
     Indication: PRODUCT ADMINISTRATION ERROR
     Route: 048
     Dates: start: 20181127, end: 20181127
  5. LEVETIRACETAM. [Suspect]
     Active Substance: LEVETIRACETAM
     Indication: PRODUCT ADMINISTRATION ERROR
     Route: 048
     Dates: start: 20181127, end: 20181127
  6. LEVOMEPROMAZINE MALEATE [Suspect]
     Active Substance: LEVOMEPROMAZINE MALEATE
     Indication: PRODUCT ADMINISTRATION ERROR
     Dosage: 1 DF, TOTAL
     Route: 048
     Dates: start: 20181127, end: 20181127

REACTIONS (2)
  - Medication error [Recovering/Resolving]
  - Sopor [Recovering/Resolving]

NARRATIVE: CASE EVENT DATE: 20181127
